FAERS Safety Report 4416098-0 (Version None)
Quarter: 2004Q3

REPORT INFORMATION
  Report Type: 
  Country: None (occurrence: None)
  Receive Date: 20040802
  Receipt Date: 20040712
  Transmission Date: 20050211
  Serious: Yes (Other)
  Sender: FDA-Public Use
  Company Number: NAPR000001

PATIENT
  Age: 56 Year
  Sex: Female

DRUGS (2)
  1. NAPRELAN [Suspect]
     Dates: start: 20040520, end: 20040524
  2. COVERSYL [Suspect]
     Dates: start: 20040520, end: 20040523

REACTIONS (1)
  - HYPERKALAEMIA [None]
